FAERS Safety Report 7702620-5 (Version None)
Quarter: 2011Q3

REPORT INFORMATION
  Report Type: 
  Country: None (occurrence: None)
  Receive Date: 20110823
  Receipt Date: 20110817
  Transmission Date: 20111222
  Serious: No
  Sender: FDA-Public Use
  Company Number: US-BIOGENIDEC-2011BI031498

PATIENT
  Sex: Male

DRUGS (3)
  1. AVONEX [Suspect]
     Indication: MULTIPLE SCLEROSIS
     Route: 030
     Dates: start: 20110319
  2. LISINOPRIL [Concomitant]
     Indication: HYPERTENSION
  3. BYSTOLIC [Concomitant]
     Indication: HYPERTENSION

REACTIONS (7)
  - FATIGUE [None]
  - MULTIPLE ALLERGIES [None]
  - EAR CONGESTION [None]
  - DIZZINESS [None]
  - PARAESTHESIA [None]
  - HYPOAESTHESIA [None]
  - OROPHARYNGEAL PAIN [None]
